FAERS Safety Report 8789987 (Version 1)
Quarter: 2012Q4

REPORT INFORMATION
  Report Type: 
  Country: BR (occurrence: BR)
  Receive Date: 20120917
  Receipt Date: 20120917
  Transmission Date: 20130627
  Serious: Yes (Death, Hospitalization)
  Sender: FDA-Public Use
  Company Number: BR-ASTRAZENECA-2012SE71751

PATIENT
  Sex: Male

DRUGS (1)
  1. SELOZOK [Suspect]
     Indication: HYPERTENSION
     Route: 048

REACTIONS (2)
  - Death [Fatal]
  - Cerebrovascular accident [Not Recovered/Not Resolved]
